FAERS Safety Report 18605113 (Version 3)
Quarter: 2022Q1

REPORT INFORMATION
  Report Type: Spontaneous
  Country: DE (occurrence: None)
  Receive Date: 20201211
  Receipt Date: 20220104
  Transmission Date: 20220423
  Serious: Yes (Life-Threatening, Hospitalization, Disabling, Other)
  Sender: FDA-Public Use
  Company Number: DE-MERCK HEALTHCARE KGAA-9203925

PATIENT
  Age: 55 Year
  Sex: Male

DRUGS (2)
  1. MAVENCLAD [Suspect]
     Active Substance: CLADRIBINE
     Indication: Relapsing-remitting multiple sclerosis
     Dosage: FIRST YEAR THERAPY
     Dates: start: 201812
  2. MAVENCLAD [Suspect]
     Active Substance: CLADRIBINE
     Dosage: SECOND YEAR THERAPY
     Dates: start: 201912

REACTIONS (2)
  - Oropharyngeal squamous cell carcinoma [Not Recovered/Not Resolved]
  - Metastases to neck [Not Recovered/Not Resolved]

NARRATIVE: CASE EVENT DATE: 20201014
